FAERS Safety Report 24987219 (Version 1)
Quarter: 2025Q1

REPORT INFORMATION
  Report Type: Spontaneous
  Country: CN (occurrence: CN)
  Receive Date: 20250219
  Receipt Date: 20250219
  Transmission Date: 20250408
  Serious: Yes (Other)
  Sender: TAKEDA
  Company Number: CN-JNJFOC-20250230949

PATIENT
  Age: 58 Year
  Sex: Male
  Weight: 71.5 kg

DRUGS (6)
  1. VELCADE [Suspect]
     Active Substance: BORTEZOMIB
     Indication: Renal amyloidosis
     Dates: start: 20250110, end: 20250120
  2. VELCADE [Suspect]
     Active Substance: BORTEZOMIB
     Indication: Chemotherapy
  3. DEXAMETHASONE [Suspect]
     Active Substance: DEXAMETHASONE
     Indication: Chemotherapy
     Dates: start: 20250110, end: 20250121
  4. DEXAMETHASONE [Suspect]
     Active Substance: DEXAMETHASONE
     Indication: Renal amyloidosis
  5. DARZALEX [Suspect]
     Active Substance: DARATUMUMAB
     Indication: Renal amyloidosis
     Dates: start: 20250110, end: 20250124
  6. DARZALEX [Suspect]
     Active Substance: DARATUMUMAB
     Indication: Chemotherapy

REACTIONS (1)
  - Myelosuppression [Recovered/Resolved]

NARRATIVE: CASE EVENT DATE: 20250121
